FAERS Safety Report 13576285 (Version 5)
Quarter: 2017Q2

REPORT INFORMATION
  Report Type: Spontaneous
  Country: US (occurrence: US)
  Receive Date: 20170524
  Receipt Date: 20170614
  Transmission Date: 20170830
  Serious: Yes (Life-Threatening, Hospitalization, Other)
  Sender: FDA-Public Use
  Company Number: US-VIFOR (INTERNATIONAL) INC.-VIT-2017-05592

PATIENT
  Age: 82 Year
  Sex: Female
  Weight: 49.3 kg

DRUGS (37)
  1. ASPIRIN 81 [Concomitant]
     Active Substance: ASPIRIN
     Route: 048
  2. VITAMINS NOS [Concomitant]
     Active Substance: VITAMINS
  3. PARACETAMOL [Concomitant]
     Active Substance: ACETAMINOPHEN
     Indication: PAIN
     Route: 048
  4. CHLORHEXIDINE [Concomitant]
     Active Substance: CHLORHEXIDINE
  5. EPOETIN ALFA [Concomitant]
     Active Substance: ERYTHROPOIETIN
     Route: 058
  6. POTASSIUM CHLORIDE. [Concomitant]
     Active Substance: POTASSIUM CHLORIDE
  7. TESSALON [Concomitant]
     Active Substance: BENZONATATE
     Route: 048
  8. NEUPOGEN [Concomitant]
     Active Substance: FILGRASTIM
  9. PEPCID [Concomitant]
     Active Substance: FAMOTIDINE
  10. CYANOCOBALAMIN. [Concomitant]
     Active Substance: CYANOCOBALAMIN
     Route: 030
  11. ICAPS AREDS [Concomitant]
     Active Substance: MINERALS\VITAMINS
     Route: 048
  12. VANCOCIN [Concomitant]
     Active Substance: VANCOMYCIN HYDROCHLORIDE
     Route: 042
  13. VANCOCIN [Concomitant]
     Active Substance: VANCOMYCIN HYDROCHLORIDE
     Route: 048
  14. CARVEDILOL. [Concomitant]
     Active Substance: CARVEDILOL
     Route: 048
  15. MIRCERA [Suspect]
     Active Substance: METHOXY POLYETHYLENE GLYCOL-EPOETIN BETA
     Indication: ANAEMIA
     Dosage: FIRST DOSE
     Route: 040
     Dates: start: 20170411
  16. FERROUS SULFATE. [Concomitant]
     Active Substance: FERROUS SULFATE
  17. LUTEIN [Concomitant]
     Active Substance: LUTEIN
  18. FISH OIL [Concomitant]
     Active Substance: FISH OIL
     Route: 048
  19. LEVOTHYROXINE. [Concomitant]
     Active Substance: LEVOTHYROXINE
     Route: 048
  20. METOPROLOL SUCCINATE. [Concomitant]
     Active Substance: METOPROLOL SUCCINATE
     Route: 048
  21. EPOETIN ALFA [Concomitant]
     Active Substance: ERYTHROPOIETIN
     Route: 058
  22. SODIUM CHLORIDE. [Concomitant]
     Active Substance: SODIUM CHLORIDE
     Dosage: 100 ML PER HOUR
     Route: 041
  23. FAMOTIDINE. [Concomitant]
     Active Substance: FAMOTIDINE
     Route: 048
  24. SALBUTAMOL [Concomitant]
     Active Substance: ALBUTEROL
     Indication: WHEEZING
  25. MIRCERA [Suspect]
     Active Substance: METHOXY POLYETHYLENE GLYCOL-EPOETIN BETA
     Dosage: FOURTH DOSE
     Route: 040
     Dates: start: 20170516, end: 20170516
  26. NORVASC [Concomitant]
     Active Substance: AMLODIPINE BESYLATE
  27. HYDRALAZINE [Concomitant]
     Active Substance: HYDRALAZINE HYDROCHLORIDE
  28. PROPOFOL. [Concomitant]
     Active Substance: PROPOFOL
     Dosage: 5 MCG/ KG/ MIN
     Route: 041
  29. ATORVASTATIN [Concomitant]
     Active Substance: ATORVASTATIN
     Route: 048
  30. MIRTAZAPINE. [Concomitant]
     Active Substance: MIRTAZAPINE
     Route: 048
  31. MIRCERA [Suspect]
     Active Substance: METHOXY POLYETHYLENE GLYCOL-EPOETIN BETA
     Dosage: SECOND DOSE
     Route: 040
     Dates: start: 20170418
  32. VENOFER [Suspect]
     Active Substance: IRON SUCROSE
     Indication: PRODUCT USED FOR UNKNOWN INDICATION
     Dosage: FIRST DOSE
     Route: 040
     Dates: start: 20170411
  33. VENOFER [Suspect]
     Active Substance: IRON SUCROSE
     Dosage: SECOND DOSE
     Route: 040
     Dates: start: 20170418
  34. METOPROLOL. [Concomitant]
     Active Substance: METOPROLOL
  35. ALLOPURINOL. [Concomitant]
     Active Substance: ALLOPURINOL
     Route: 048
  36. TRAMADOL. [Concomitant]
     Active Substance: TRAMADOL
     Route: 048
  37. CYANOCOBALAMIN. [Concomitant]
     Active Substance: CYANOCOBALAMIN
     Route: 030

REACTIONS (29)
  - Pulse absent [Recovered/Resolved]
  - Cardio-respiratory arrest [Unknown]
  - Urinary tract infection [Unknown]
  - Vomiting [Recovered/Resolved]
  - Hypotension [Recovered/Resolved]
  - Unresponsive to stimuli [Recovered/Resolved]
  - Ventricular fibrillation [Unknown]
  - Discomfort [Unknown]
  - Blood pressure decreased [Recovered/Resolved]
  - Metabolic acidosis [Recovered/Resolved]
  - Transaminases increased [Unknown]
  - Tachycardia [Unknown]
  - Supraventricular extrasystoles [Unknown]
  - Sedation [Unknown]
  - Clostridium difficile infection [Recovering/Resolving]
  - Bacterial infection [Unknown]
  - Anxiety [Unknown]
  - Pain [Unknown]
  - Drug hypersensitivity [Recovered/Resolved]
  - Hypomagnesaemia [Recovering/Resolving]
  - Pyuria [Unknown]
  - Heart rate decreased [Recovered/Resolved]
  - Pruritus [Recovered/Resolved]
  - Acute respiratory failure [Recovered/Resolved]
  - Atrial fibrillation [Recovered/Resolved]
  - Hypokalaemia [Recovering/Resolving]
  - Bacteriuria [Unknown]
  - Wound [Unknown]
  - Diarrhoea [Unknown]

NARRATIVE: CASE EVENT DATE: 2017
